FAERS Safety Report 10178900 (Version 2)
Quarter: 2014Q2

REPORT INFORMATION
  Report Type: Spontaneous
  Country: US (occurrence: US)
  Receive Date: 20140519
  Receipt Date: 20140528
  Transmission Date: 20141212
  Serious: No
  Sender: FDA-Public Use
  Company Number: US-BIOGENIDEC-2014BI040523

PATIENT
  Age: 61 Year
  Sex: Female

DRUGS (7)
  1. TECFIDERA [Suspect]
     Indication: MULTIPLE SCLEROSIS
     Route: 048
     Dates: start: 20140404
  2. OMEPRAZOLE [Concomitant]
  3. CLONAZEPAM [Concomitant]
  4. CARBAMAZEPINE ER [Concomitant]
  5. BACLOFEN [Concomitant]
  6. CALCIUM MAGNESIUM ZINC [Concomitant]
  7. VIT B COMPLEX [Concomitant]

REACTIONS (2)
  - Weight increased [Unknown]
  - Flushing [Unknown]
